FAERS Safety Report 7822999-3 (Version None)
Quarter: 2011Q4

REPORT INFORMATION
  Report Type: 
  Country: None (occurrence: None)
  Receive Date: 20111018
  Receipt Date: 20101112
  Transmission Date: 20120403
  Serious: No
  Sender: FDA-Public Use
  Company Number: US-ASTRAZENECA-2010SE45861

PATIENT
  Sex: Male
  Weight: 71.7 kg

DRUGS (5)
  1. SYMBICORT [Suspect]
     Indication: CHRONIC OBSTRUCTIVE PULMONARY DISEASE
     Dosage: 160/4.5 1 PUFF BID
     Route: 055
     Dates: start: 20100101
  2. LISINOPRIL [Concomitant]
     Indication: CARDIAC DISORDER
  3. CARVEDILOL [Concomitant]
  4. SIMVASTATIN [Concomitant]
  5. VENTOLIN [Concomitant]

REACTIONS (2)
  - DRUG INEFFECTIVE [None]
  - WEIGHT INCREASED [None]
